FAERS Safety Report 4707514-5 (Version None)
Quarter: 2005Q3

REPORT INFORMATION
  Report Type: 
  Country: None (occurrence: None)
  Receive Date: 20050701
  Receipt Date: 20050622
  Transmission Date: 20060218
  Serious: Yes (Disabling, Other)
  Sender: FDA-Public Use
  Company Number: 215547

PATIENT
  Age: 64 Year
  Sex: Male

DRUGS (3)
  1. EFALIZUMAB (EFALIZUMAB) PWDR + SOLVENT, INJECTION SOLN, 125MG [Suspect]
     Indication: PSORIASIS
     Dosage: 1 MG/KG, 1/WEEK, SUBCUTANEOUS
     Route: 058
     Dates: start: 20050406, end: 20050601
  2. ACETAMINOPHEN [Concomitant]
  3. AMOXICILLIN [Concomitant]

REACTIONS (8)
  - BALANCE DISORDER [None]
  - CHILLS [None]
  - DIZZINESS [None]
  - HEADACHE [None]
  - HYPOACUSIS [None]
  - TINNITUS [None]
  - TREMOR [None]
  - VOMITING [None]
